FAERS Safety Report 9899851 (Version 2)
Quarter: 2014Q3

REPORT INFORMATION
  Report Type: Spontaneous
  Country: US (occurrence: US)
  Receive Date: 20140214
  Receipt Date: 20140807
  Transmission Date: 20150326
  Serious: Yes (Hospitalization, Other)
  Sender: FDA-Public Use
  Company Number: US-009507513-1402USA006653

PATIENT
  Sex: Female

DRUGS (1)
  1. NUVARING [Suspect]
     Active Substance: ETHINYL ESTRADIOL\ETONOGESTREL
     Indication: CONTRACEPTION
     Dosage: UNK
     Route: 067
     Dates: end: 20070902

REACTIONS (11)
  - Headache [Recovering/Resolving]
  - Hypokalaemia [Recovered/Resolved]
  - Intervertebral disc protrusion [Unknown]
  - Adenoidectomy [Unknown]
  - Gastrooesophageal reflux disease [Recovering/Resolving]
  - Pneumonia [Unknown]
  - Back disorder [Recovering/Resolving]
  - Anxiety [Unknown]
  - Caesarean section [Unknown]
  - Tonsillectomy [Unknown]
  - Pulmonary embolism [Unknown]

NARRATIVE: CASE EVENT DATE: 20070823
